FAERS Safety Report 7378813-6 (Version None)
Quarter: 2011Q1

REPORT INFORMATION
  Report Type: 
  Country: None (occurrence: None)
  Receive Date: 20110328
  Receipt Date: 20110314
  Transmission Date: 20110831
  Serious: Yes (Hospitalization)
  Sender: FDA-Public Use
  Company Number: PHHY2011VE21018

PATIENT
  Sex: Female

DRUGS (3)
  1. ACLASTA [Suspect]
     Indication: OSTEOPOROSIS
     Dosage: 5MG/YEAR
     Dates: start: 20100601
  2. CALCIUM [Concomitant]
     Dosage: UNK
  3. ROCALTROL [Concomitant]
     Dosage: SINCE ONE MONTH AGO

REACTIONS (1)
  - SPINAL FRACTURE [None]
